FAERS Safety Report 5474895-7 (Version None)
Quarter: 2007Q3

REPORT INFORMATION
  Report Type: 
  Country: None (occurrence: None)
  Receive Date: 20070831
  Receipt Date: 20070403
  Transmission Date: 20080115
  Serious: No
  Sender: FDA-Public Use
  Company Number: 239329

PATIENT
  Age: 81 Year
  Sex: Female

DRUGS (4)
  1. LUCENTIS [Suspect]
     Indication: MACULAR DEGENERATION
     Dates: start: 20070101
  2. ARIMIDEX [Concomitant]
  3. ACCUPRIL [Concomitant]
  4. DAILY VITAMIN (VITAMINS NOS) [Concomitant]

REACTIONS (1)
  - EYE DISORDER [None]
